FAERS Safety Report 8020333-X (Version None)
Quarter: 2012Q1

REPORT INFORMATION
  Report Type: 
  Country: None (occurrence: None)
  Receive Date: 20120103
  Receipt Date: 20111219
  Transmission Date: 20120608
  Serious: Yes (Other)
  Sender: FDA-Public Use
  Company Number: US-WATSON-2011-22406

PATIENT
  Age: 14 Year
  Sex: Male

DRUGS (3)
  1. PREDNISONE TAB [Suspect]
     Indication: CHRONIC GRAFT VERSUS HOST DISEASE
  2. SIROLIMUS [Suspect]
     Indication: GRAFT VERSUS HOST DISEASE
  3. TACROLIMUS [Suspect]
     Indication: CHRONIC GRAFT VERSUS HOST DISEASE

REACTIONS (4)
  - CHRONIC GRAFT VERSUS HOST DISEASE [None]
  - OSTEONECROSIS [None]
  - MYOPATHY [None]
  - DRUG INEFFECTIVE [None]
